FAERS Safety Report 14965542 (Version 1)
Quarter: 2018Q2

REPORT INFORMATION
  Report Type: Spontaneous
  Country: DK (occurrence: DK)
  Receive Date: 20180602
  Receipt Date: 20180602
  Transmission Date: 20180711
  Serious: Yes (Life-Threatening, Hospitalization)
  Sender: FDA-Public Use
  Company Number: DK-B.I. PHARMACEUTICALS,INC./RIDGEFIELD-2018-12-001885

PATIENT
  Age: 63 Year
  Sex: Female

DRUGS (8)
  1. ENALAPRIL [Concomitant]
     Active Substance: ENALAPRIL
     Indication: HYPERTENSION
     Route: 048
     Dates: start: 20100429
  2. JARDIANCE [Suspect]
     Active Substance: EMPAGLIFLOZIN
     Indication: TYPE 2 DIABETES MELLITUS
     Route: 048
     Dates: start: 201711, end: 20180310
  3. PARACETAMOL [Concomitant]
     Active Substance: ACETAMINOPHEN
     Indication: PAIN
     Route: 048
     Dates: start: 20140512
  4. TRAMADOL. [Concomitant]
     Active Substance: TRAMADOL
     Indication: PAIN
     Dosage: DOSE: 1 CAPSULE WHEN NEEDED, MAXIMUM 3 TIMES A DAY
     Route: 048
     Dates: start: 20121115
  5. METFORMIN [Concomitant]
     Active Substance: METFORMIN HYDROCHLORIDE
     Indication: TYPE 2 DIABETES MELLITUS
     Dosage: PAUSED 10-MAR-2018 TO 13-MAR-2018
     Route: 048
     Dates: start: 20100325
  6. FUSIDINSYRE/BETAMETASON LEO [Concomitant]
     Indication: ECZEMA INFECTED
     Dosage: STRE: 1+20 MG. DOSE: FOR EXTERNAL USE 2 TIMES DAILY FOR 1 WEEK, THEREAFTER 1 TIME DAILY FOR 10 DAYS
     Dates: start: 20180104
  7. SIMVASTATIN. [Concomitant]
     Active Substance: SIMVASTATIN
     Indication: HYPERCHOLESTEROLAEMIA
     Route: 048
     Dates: start: 20110201
  8. DIPRODERM [Concomitant]
     Active Substance: BETAMETHASONE DIPROPIONATE
     Indication: ECZEMA
     Dosage: STRENGTH:0.05%: DOSE: FOR EXTERNAL USE 2-3 TIMES DAILY; GIVEN AT LEAST SINCE 03-JUN-2016
     Route: 061

REACTIONS (5)
  - Vomiting [Recovered/Resolved]
  - Abdominal discomfort [Recovered/Resolved]
  - Malaise [Recovered/Resolved]
  - Ketoacidosis [Recovered/Resolved]
  - Nausea [Recovered/Resolved]

NARRATIVE: CASE EVENT DATE: 201803
